FAERS Safety Report 21000679 (Version 10)
Quarter: 2023Q2

REPORT INFORMATION
  Report Type: Report from Study
  Country: DE (occurrence: None)
  Receive Date: 20220623
  Receipt Date: 20230530
  Transmission Date: 20230721
  Serious: Yes (Hospitalization)
  Sender: FDA-Public Use
  Company Number: DE-ROCHE-3119142

PATIENT
  Age: 57 Year
  Sex: Female
  Weight: 104 kg

DRUGS (13)
  1. ATEZOLIZUMAB [Suspect]
     Active Substance: ATEZOLIZUMAB
     Indication: Triple negative breast cancer
     Dosage: ON 21/APR/2022 AND 13/MAY/2022, MOST RECENT DOSE OF ATEZOLIZUMAB PRIOR TO SAE WAS GIVEN.
     Route: 041
     Dates: start: 20220407
  2. PACLITAXEL [Suspect]
     Active Substance: PACLITAXEL
     Indication: Triple negative breast cancer
     Dosage: ON 05/MAY/2022 AND 25/MAY/2022, MOST RECENT DOSE OF PACLITAXEL PRIOR TO SAE WAS GIVEN.
     Route: 042
     Dates: start: 20220421
  3. PACLITAXEL [Suspect]
     Active Substance: PACLITAXEL
     Dosage: DATE OF LAST DOSE PRIOR TO SAE: 13/MAY/2022
     Route: 042
     Dates: start: 20220421
  4. CARBOPLATIN [Suspect]
     Active Substance: CARBOPLATIN
     Indication: Triple negative breast cancer
     Dosage: ON 05/MAY/2022 AND 25/MAY/2022, MOST RECENT DOSE OF CARBOPLATIN PRIOR TO SAE WAS GIVEN.?13/MAY/2022
     Route: 042
     Dates: start: 20220421
  5. LEVOTHYROXINE SODIUM [Concomitant]
     Active Substance: LEVOTHYROXINE SODIUM
  6. RAMIPRIL [Concomitant]
     Active Substance: RAMIPRIL
  7. AMLODIPINE [Concomitant]
     Active Substance: AMLODIPINE BESYLATE
  8. METFORMIN HYDROCHLORIDE [Concomitant]
     Active Substance: METFORMIN HYDROCHLORIDE
  9. OMEPRAZOLE [Concomitant]
     Active Substance: OMEPRAZOLE
  10. OPIPRAMOLI DIHYDROCHLORIDUM [Concomitant]
  11. GLIMEPIRIDE [Concomitant]
     Active Substance: GLIMEPIRIDE
  12. POTASSIUM IODIDE [Concomitant]
     Active Substance: POTASSIUM IODIDE
  13. IMODIUM [Concomitant]
     Active Substance: LOPERAMIDE HYDROCHLORIDE
     Dates: start: 20220606, end: 20220619

REACTIONS (2)
  - Infection [Recovered/Resolved with Sequelae]
  - Diarrhoea [Recovered/Resolved with Sequelae]

NARRATIVE: CASE EVENT DATE: 20220516
